FAERS Safety Report 5823066-0 (Version None)
Quarter: 2008Q3

REPORT INFORMATION
  Report Type: 
  Country: None (occurrence: None)
  Receive Date: 20080725
  Receipt Date: 20070711
  Transmission Date: 20090109
  Serious: No
  Sender: FDA-Public Use
  Company Number: US-AMGEN-KDL233557

PATIENT
  Sex: Female
  Weight: 70.4 kg

DRUGS (4)
  1. PROCRIT [Suspect]
     Indication: MYELODYSPLASTIC SYNDROME
     Dates: start: 20060701
  2. IRON [Concomitant]
     Dates: start: 20060101
  3. NEUPOGEN [Concomitant]
     Dates: start: 20060601
  4. PRILOSEC [Concomitant]
     Dates: start: 20070101

REACTIONS (1)
  - INJECTION SITE PAIN [None]
